FAERS Safety Report 17890669 (Version 1)
Quarter: 2020Q2

REPORT INFORMATION
  Report Type: Spontaneous
  Country: US (occurrence: US)
  Receive Date: 20200612
  Receipt Date: 20200612
  Transmission Date: 20200714
  Serious: No
  Sender: FDA-Public Use
  Company Number: US-PERRIGO-19US009557

PATIENT
  Age: 87 Year
  Sex: Male
  Weight: 69.39 kg

DRUGS (3)
  1. TIKOSYN [Concomitant]
     Active Substance: DOFETILIDE
     Indication: ARRHYTHMIA
     Dosage: UNK
     Route: 065
  2. MINOXIDIL. [Suspect]
     Active Substance: MINOXIDIL
     Indication: ALOPECIA
     Dosage: 1/2 CAPFUL, 1 TO 2 TIMES DAILY
     Route: 061
     Dates: start: 2012, end: 201907
  3. MINOXIDIL. [Suspect]
     Active Substance: MINOXIDIL
     Dosage: 1/2 CAPFUL, SINGLE
     Route: 061
     Dates: start: 20190805, end: 20190805

REACTIONS (6)
  - Application site pruritus [Not Recovered/Not Resolved]
  - Application site scab [Recovered/Resolved]
  - Inappropriate schedule of product administration [Recovered/Resolved]
  - Hair texture abnormal [Not Recovered/Not Resolved]
  - Application site pain [Recovered/Resolved]
  - Application site exfoliation [Not Recovered/Not Resolved]

NARRATIVE: CASE EVENT DATE: 2012
